FAERS Safety Report 6039967-7 (Version None)
Quarter: 2009Q1

REPORT INFORMATION
  Report Type: 
  Country: None (occurrence: None)
  Receive Date: 20090116
  Receipt Date: 20071105
  Transmission Date: 20090719
  Serious: No
  Sender: FDA-Public Use
  Company Number: US-BRISTOL-MYERS SQUIBB COMPANY-13969340

PATIENT
  Age: 75 Year
  Sex: Female

DRUGS (3)
  1. ABILIFY [Suspect]
     Dosage: INCREASED TO 20 MG ON 30OCT07.
     Route: 048
     Dates: start: 20070626, end: 20071029
  2. PROZAC [Concomitant]
  3. VALIUM [Concomitant]

REACTIONS (1)
  - DRUG INEFFECTIVE [None]
